FAERS Safety Report 8083333-X (Version None)
Quarter: 2012Q1

REPORT INFORMATION
  Report Type: 
  Country: None (occurrence: None)
  Receive Date: 20120127
  Receipt Date: 20110114
  Transmission Date: 20120608
  Serious: No
  Sender: FDA-Public Use
  Company Number: US-ABBOTT-11P-163-0697599-00

PATIENT
  Age: 32 Year
  Sex: Male

DRUGS (6)
  1. VALIUM [Concomitant]
     Indication: ANXIETY
  2. HUMIRA [Suspect]
     Indication: CROHN'S DISEASE
     Dosage: INITIAL DOSE DUE TO PREVIOUS REMICADE THERAPY
     Dates: start: 20110112
  3. MERCAPTOPURINE [Concomitant]
     Indication: PRODUCT USED FOR UNKNOWN INDICATION
     Dosage: 50MG, 2.5 TABLETS DAILY
  4. VITAMIN D [Concomitant]
     Indication: PRODUCT USED FOR UNKNOWN INDICATION
  5. EFFEXOR XR [Concomitant]
     Indication: DEPRESSION
  6. LORTAB [Concomitant]
     Indication: ARTHRALGIA

REACTIONS (4)
  - ABDOMINAL PAIN [None]
  - DIARRHOEA [None]
  - MIGRAINE [None]
  - VOMITING [None]
